FAERS Safety Report 16881894 (Version 1)
Quarter: 2019Q4

REPORT INFORMATION
  Report Type: Spontaneous
  Country: US (occurrence: US)
  Receive Date: 20191003
  Receipt Date: 20191003
  Transmission Date: 20200122
  Serious: Yes (Hospitalization)
  Sender: FDA-Public Use
  Company Number: US-ASTRAZENECA-2019SF39121

PATIENT
  Age: 22 Month
  Sex: Female
  Weight: 12 kg

DRUGS (1)
  1. SYNAGIS [Suspect]
     Active Substance: PALIVIZUMAB
     Route: 030

REACTIONS (2)
  - Respiration abnormal [Unknown]
  - Tonsillitis [Unknown]

NARRATIVE: CASE EVENT DATE: 201909
